FAERS Safety Report 7249044-5 (Version None)
Quarter: 2011Q1

REPORT INFORMATION
  Report Type: 
  Country: None (occurrence: None)
  Receive Date: 20110128
  Receipt Date: 20100607
  Transmission Date: 20110831
  Serious: Yes (Hospitalization)
  Sender: FDA-Public Use
  Company Number: US-BAYER-201025613NA

PATIENT
  Sex: Female
  Weight: 134 kg

DRUGS (17)
  1. ZOLOFT [Concomitant]
     Indication: DEPRESSION
     Dosage: 50 MG, UNK
     Dates: start: 19980101
  2. AMOXICILLIN [Concomitant]
     Dosage: 875 MG, UNK
     Dates: start: 20080416
  3. YAZ [Suspect]
     Dosage: UNK
     Dates: start: 20071029, end: 20080525
  4. MEDROXYPROGESTERONE [Concomitant]
     Dosage: UNK
     Dates: start: 20080121
  5. DIETARY SUPPLEMENTS [Concomitant]
  6. YASMIN [Suspect]
     Indication: PREMENSTRUAL SYNDROME
     Dosage: UNK
     Dates: start: 20071029, end: 20080525
  7. OMEGA 3 FATTY ACIDS [Concomitant]
     Indication: HYPERCHOLESTEROLAEMIA
     Dosage: 120 NOT APPL., UNK
     Dates: start: 20080101
  8. CEPHALEXIN [Concomitant]
     Dosage: 500 MG, UNK
     Dates: start: 20071204
  9. ALBUTEROL [Concomitant]
     Dosage: UNK UNK, PRN
     Route: 055
  10. ZOLOFT [Concomitant]
     Indication: ANGER
  11. IBUPROFEN [Concomitant]
     Dosage: 600 MG, UNK
     Dates: start: 20080519
  12. METFORMIN HCL [Concomitant]
     Indication: DIABETES MELLITUS
     Dosage: UNK
     Dates: start: 20080101
  13. PROMETHAZINE VC PLAIN [Concomitant]
     Dosage: UNK
     Route: 048
     Dates: start: 20071120
  14. NODOZ [Concomitant]
     Dosage: UNK
     Dates: start: 20080519
  15. FLUCONAZOLE [Concomitant]
     Dosage: 150 MG, UNK
     Dates: start: 20080325
  16. IMITREX [Concomitant]
     Indication: MIGRAINE
     Dosage: UNK UNK, PRN
  17. POTASSIUM [Concomitant]
     Dosage: UNK UNK, QD

REACTIONS (5)
  - JOINT SWELLING [None]
  - PAIN IN EXTREMITY [None]
  - DEEP VEIN THROMBOSIS [None]
  - OEDEMA PERIPHERAL [None]
  - JOINT SPRAIN [None]
